FAERS Safety Report 25149636 (Version 2)
Quarter: 2025Q2

REPORT INFORMATION
  Report Type: Spontaneous
  Country: JP (occurrence: JP)
  Receive Date: 20250402
  Receipt Date: 20250423
  Transmission Date: 20250716
  Serious: Yes (Death, Hospitalization, Other)
  Sender: BAYER HEALTHCARE PHARMACEUTICALS INC.
  Company Number: JP-BAYER-2025A043585

PATIENT
  Age: 9 Decade
  Sex: Female

DRUGS (4)
  1. ADEMPAS [Suspect]
     Active Substance: RIOCIGUAT
     Indication: Pulmonary arterial hypertension
     Dosage: 0.5 MG, QD
     Route: 048
     Dates: start: 201912
  2. ADEMPAS [Suspect]
     Active Substance: RIOCIGUAT
     Indication: Systemic scleroderma
  3. SPIRONOLACTONE [Concomitant]
     Active Substance: SPIRONOLACTONE
     Route: 048
  4. SAMSCA [Concomitant]
     Active Substance: TOLVAPTAN
     Route: 048

REACTIONS (7)
  - Hepatic encephalopathy [Fatal]
  - Hepatic failure [Fatal]
  - Pneumonia [Recovering/Resolving]
  - Interstitial lung disease [None]
  - Infection [None]
  - Oxygen saturation decreased [None]
  - Product use issue [None]

NARRATIVE: CASE EVENT DATE: 20250101
